FAERS Safety Report 4548789-5 (Version None)
Quarter: 2005Q1

REPORT INFORMATION
  Report Type: 
  Country: None (occurrence: None)
  Receive Date: 20050107
  Receipt Date: 20050107
  Transmission Date: 20050727
  Serious: Yes (Hospitalization)
  Sender: FDA-Public Use
  Company Number: None

PATIENT
  Age: 78 Year
  Sex: Male
  Weight: 69.8539 kg

DRUGS (1)
  1. HEPARIN [Suspect]
     Indication: MYOCARDIAL INFARCTION
     Dosage: 18 UNITS/KG/  PER IV  INTRAVENOUS  PROTOCOL
     Route: 042
     Dates: start: 20041118, end: 20041121

REACTIONS (2)
  - CONFUSIONAL STATE [None]
  - HEPARIN-INDUCED THROMBOCYTOPENIA [None]
